FAERS Safety Report 7929213-9 (Version None)
Quarter: 2011Q4

REPORT INFORMATION
  Report Type: 
  Country: None (occurrence: None)
  Receive Date: 20111121
  Receipt Date: 20111115
  Transmission Date: 20120403
  Serious: Yes (Death, Other)
  Sender: FDA-Public Use
  Company Number: IE-BRISTOL-MYERS SQUIBB COMPANY-16073116

PATIENT
  Sex: Male

DRUGS (5)
  1. TRUVADA [Suspect]
     Dosage: 1DF: 1 TABS
     Route: 064
     Dates: start: 20090416
  2. METHADONE HCL [Suspect]
     Route: 064
  3. ZOPICLONE [Suspect]
     Route: 064
  4. ATAZANAVIR [Suspect]
     Route: 064
     Dates: start: 20090416
  5. NORVIR [Suspect]
     Route: 064
     Dates: start: 20090416

REACTIONS (2)
  - CEREBRAL HAEMORRHAGE [None]
  - DEATH [None]
